FAERS Safety Report 16970541 (Version 3)
Quarter: 2019Q4

REPORT INFORMATION
  Report Type: Spontaneous
  Country: US (occurrence: US)
  Receive Date: 20191029
  Receipt Date: 20191114
  Transmission Date: 20200122
  Serious: No
  Sender: FDA-Public Use
  Company Number: US-PFIZER INC-2019132774

PATIENT
  Age: 49 Year
  Sex: Male

DRUGS (3)
  1. LYRICA [Suspect]
     Active Substance: PREGABALIN
     Indication: NEUROPATHY PERIPHERAL
     Dosage: 50 MG, AS NEEDED [EVERY 4-6 HOURS AS NEEDED]
     Route: 048
  2. LYRICA [Suspect]
     Active Substance: PREGABALIN
     Indication: CROHN^S DISEASE
     Dosage: 50 MG, 4X/DAY (FOUR TIMES A DAY AS NEEDED)
     Route: 048
  3. LYRICA [Suspect]
     Active Substance: PREGABALIN
     Dosage: 50 MG, UP TO 5 TIMES A DAY

REACTIONS (1)
  - Dizziness [Unknown]
